FAERS Safety Report 4934227-7 (Version None)
Quarter: 2006Q1

REPORT INFORMATION
  Report Type: 
  Country: None (occurrence: None)
  Receive Date: 20060303
  Receipt Date: 20060217
  Transmission Date: 20060701
  Serious: Yes (Other)
  Sender: FDA-Public Use
  Company Number: DE-2006-003295

PATIENT
  Sex: Female

DRUGS (6)
  1. MAGNEVIST [Suspect]
     Indication: NUCLEAR MAGNETIC RESONANCE IMAGING
     Dosage: 1 DOSE, INTRAVENOUS
     Route: 042
     Dates: start: 20060130, end: 20060130
  2. SOLUTRAST (IOPAMIDOL) [Suspect]
     Indication: THERAPEUTIC EMBOLISATION
     Dosage: INTRA-ARTERIAL
     Route: 013
     Dates: start: 20060206, end: 20060206
  3. ANTIHISTAMINES [Concomitant]
  4. ROCEPHIN [Concomitant]
  5. FORTECORTIN [Concomitant]
  6. IBUPROFEN [Concomitant]

REACTIONS (10)
  - ABDOMINAL PAIN UPPER [None]
  - ABDOMINAL TENDERNESS [None]
  - ARRHYTHMIA [None]
  - DRUG TOXICITY [None]
  - FEELING COLD [None]
  - HEPATIC STEATOSIS [None]
  - HEPATOTOXICITY [None]
  - INFUSION RELATED REACTION [None]
  - PANCREATOLITHIASIS [None]
  - TACHYCARDIA [None]
